FAERS Safety Report 4649736-8 (Version None)
Quarter: 2005Q2

REPORT INFORMATION
  Report Type: 
  Country: None (occurrence: None)
  Receive Date: 20050428
  Receipt Date: 20050428
  Transmission Date: 20051028
  Serious: Yes (Hospitalization)
  Sender: FDA-Public Use
  Company Number: None

PATIENT
  Sex: Female
  Weight: 74.1 kg

DRUGS (2)
  1. ZOCOR [Suspect]
     Indication: CORONARY ARTERY DISEASE
     Dosage: 40 MG   DAILY   ORAL
     Route: 048
  2. LOPID [Suspect]
     Indication: CORONARY ARTERY DISEASE
     Dosage: 600 MG  TWICE DAILY  ORAL
     Route: 048

REACTIONS (5)
  - CHEST PAIN [None]
  - FALL [None]
  - LOSS OF CONSCIOUSNESS [None]
  - RHABDOMYOLYSIS [None]
  - SYNCOPE [None]
